FAERS Safety Report 5267395-0 (Version None)
Quarter: 2007Q1

REPORT INFORMATION
  Report Type: 
  Country: None (occurrence: None)
  Receive Date: 20070316
  Receipt Date: 20070308
  Transmission Date: 20070707
  Serious: Yes (Other)
  Sender: FDA-Public Use
  Company Number: US-ELI_LILLY_AND_COMPANY-US200701004506

PATIENT
  Age: 72 Year
  Sex: Female

DRUGS (5)
  1. HUMALOG [Suspect]
     Indication: DIABETES MELLITUS
     Dosage: UNK, UNKNOWN
     Dates: start: 19970101
  2. ALL OTHER THERAPEUTIC PRODUCTS [Concomitant]
     Dosage: UNK, UNKNOWN
  3. HUMAN INSULIN (RDNA ORIGIN) [Suspect]
     Dosage: UNK, UNKNOWN
  4. LANTUS [Concomitant]
     Dosage: UNK, UNKNOWN
  5. AVANDIA [Concomitant]
     Dosage: UNK, UNKNOWN

REACTIONS (4)
  - CATARACT [None]
  - CATARACT OPERATION [None]
  - RETINAL HAEMORRHAGE [None]
  - RETINOPATHY [None]
